FAERS Safety Report 10563785 (Version 1)
Quarter: 2014Q4

REPORT INFORMATION
  Report Type: Spontaneous
  Country: BR (occurrence: BR)
  Receive Date: 20141104
  Receipt Date: 20141104
  Transmission Date: 20150529
  Serious: Yes (Hospitalization, Other)
  Sender: FDA-Public Use
  Company Number: BR-TEVA-518826ISR

PATIENT
  Age: 75 Year
  Sex: Male

DRUGS (2)
  1. TEVAOXALI [Suspect]
     Active Substance: OXALIPLATIN
     Indication: COLON CANCER
     Dosage: 15.9714 MILLIGRAM DAILY;
     Route: 042
     Dates: start: 20140804, end: 20140825
  2. XELODA [Concomitant]
     Active Substance: CAPECITABINE
     Indication: COLON CANCER
     Dosage: 3.5 MILLIGRAM DAILY;
     Route: 048
     Dates: start: 20140804

REACTIONS (7)
  - Diarrhoea [Recovered/Resolved]
  - Vomiting [Recovered/Resolved]
  - Nausea [Recovered/Resolved]
  - Leukocytosis [Recovered/Resolved]
  - Intestinal dilatation [Recovered/Resolved]
  - Abdominal pain [Recovered/Resolved]
  - C-reactive protein abnormal [Recovered/Resolved]

NARRATIVE: CASE EVENT DATE: 20140908
